FAERS Safety Report 5397029-6 (Version None)
Quarter: 2007Q3

REPORT INFORMATION
  Report Type: 
  Country: None (occurrence: None)
  Receive Date: 20070725
  Receipt Date: 20070716
  Transmission Date: 20080115
  Serious: Yes (Hospitalization)
  Sender: FDA-Public Use
  Company Number: US-SHR-US-2007-018706

PATIENT
  Age: 65 Year
  Sex: Female
  Weight: 48.073 kg

DRUGS (2)
  1. BETASERON [Suspect]
     Indication: SECONDARY PROGRESSIVE MULTIPLE SCLEROSIS
     Route: 058
     Dates: start: 20070221, end: 20070420
  2. BETASERON [Suspect]
     Dosage: 4 MIU, UNK
     Route: 058
     Dates: start: 20070605

REACTIONS (4)
  - BLISTER [None]
  - LIVER FUNCTION TEST ABNORMAL [None]
  - OPEN WOUND [None]
  - SKIN DISCOLOURATION [None]
